FAERS Safety Report 22041110 (Version 3)
Quarter: 2024Q3

REPORT INFORMATION
  Report Type: Report from Study
  Country: GT (occurrence: GT)
  Receive Date: 20230227
  Receipt Date: 20240801
  Transmission Date: 20241017
  Serious: Yes (Hospitalization)
  Sender: BIOGEN
  Company Number: GT-BIOGEN-2023BI01189504

PATIENT
  Sex: Female
  Weight: 67 kg

DRUGS (1)
  1. TYSABRI [Suspect]
     Active Substance: NATALIZUMAB
     Indication: Relapsing-remitting multiple sclerosis
     Route: 050
     Dates: start: 20200206

REACTIONS (4)
  - Phlebitis [Recovered/Resolved]
  - Thrombosis [Recovered/Resolved]
  - Hepatic steatosis [Not Recovered/Not Resolved]
  - Asthenia [Recovered/Resolved]
